FAERS Safety Report 9690674 (Version 1)
Quarter: 2013Q4

REPORT INFORMATION
  Report Type: Spontaneous
  Country: GB (occurrence: None)
  Receive Date: 20131113
  Receipt Date: 20131113
  Transmission Date: 20140711
  Serious: Yes (Disabling)
  Sender: FDA-Public Use
  Company Number: ABR_01251_2013

PATIENT
  Age: 22 Year
  Sex: Female

DRUGS (4)
  1. ERYTHROMYCIN (ERYTHROMYCIN) [Suspect]
     Indication: ACNE
     Dosage: (DF)
  2. LYMECYCLINE (LYMECYCLINE) [Suspect]
     Indication: ACNE
     Dosage: (DF)
  3. OXYTETRACYCLINE (OXYTETRACYCLINE) [Suspect]
     Indication: ACNE
     Dosage: (DF)
  4. MICROGYNON /00022701/ [Concomitant]

REACTIONS (3)
  - Bullous lung disease [None]
  - Interstitial lung disease [None]
  - Dyspnoea exertional [None]
